FAERS Safety Report 7238152-0 (Version None)
Quarter: 2011Q1

REPORT INFORMATION
  Report Type: 
  Country: None (occurrence: None)
  Receive Date: 20110121
  Receipt Date: 20110118
  Transmission Date: 20110831
  Serious: Yes (Other)
  Sender: FDA-Public Use
  Company Number: US-AMGEN-USASP2011003416

PATIENT

DRUGS (3)
  1. NPLATE [Suspect]
     Dosage: UNK
     Dates: end: 20110110
  2. RITUXIMAB [Concomitant]
     Indication: IDIOPATHIC THROMBOCYTOPENIC PURPURA
     Dosage: UNK
     Dates: start: 20110103, end: 20110110
  3. NPLATE [Suspect]
     Indication: IDIOPATHIC THROMBOCYTOPENIC PURPURA
     Dosage: UNK
     Dates: start: 20101218

REACTIONS (1)
  - BIOPSY BONE MARROW ABNORMAL [None]
